FAERS Safety Report 8071593-0 (Version None)
Quarter: 2012Q1

REPORT INFORMATION
  Report Type: 
  Country: None (occurrence: None)
  Receive Date: 20120125
  Receipt Date: 20120117
  Transmission Date: 20120608
  Serious: Yes (Death)
  Sender: FDA-Public Use
  Company Number: US-MILLENNIUM PHARMACEUTICALS, INC.-2011-05946

PATIENT
  Sex: Male

DRUGS (5)
  1. MELPHALAN [Suspect]
     Indication: MULTIPLE MYELOMA
     Dosage: UNK
     Route: 048
     Dates: start: 20110914
  2. NEULASTA [Suspect]
     Dosage: UNK
     Dates: start: 20111115
  3. VELCADE [Suspect]
     Indication: MULTIPLE MYELOMA
     Dosage: 2 MG, CYCLIC
     Route: 058
     Dates: start: 20110914
  4. NEULASTA [Suspect]
     Indication: NEUTROPENIA
     Dosage: UNK
     Dates: start: 20110919
  5. VELCADE [Suspect]
     Dosage: 1.2 MG, CYCLIC
     Route: 058
     Dates: start: 20111102, end: 20111130

REACTIONS (3)
  - OFF LABEL USE [None]
  - ACCIDENT [None]
  - NEUTROPENIA [None]
